FAERS Safety Report 5999169-7 (Version None)
Quarter: 2008Q4

REPORT INFORMATION
  Report Type: 
  Country: None (occurrence: None)
  Receive Date: 20081211
  Receipt Date: 20081201
  Transmission Date: 20090506
  Serious: Yes (Other)
  Sender: FDA-Public Use
  Company Number: 2008AP003303

PATIENT
  Sex: Male

DRUGS (2)
  1. CETIRIZINE HCL [Suspect]
     Dosage: 5 TAB; ; PO
     Route: 048
  2. PREDNISONE TAB [Concomitant]

REACTIONS (3)
  - ACCIDENTAL OVERDOSE [None]
  - CONFUSIONAL STATE [None]
  - MEDICATION ERROR [None]
